FAERS Safety Report 5989503-6 (Version None)
Quarter: 2008Q4

REPORT INFORMATION
  Report Type: 
  Country: None (occurrence: None)
  Receive Date: 20081210
  Receipt Date: 20081204
  Transmission Date: 20090506
  Serious: Yes (Other)
  Sender: FDA-Public Use
  Company Number: US-ALLERGAN-0812042US

PATIENT
  Sex: Female
  Weight: 45.351 kg

DRUGS (14)
  1. BOTOX [Suspect]
     Indication: TORTICOLLIS
     Dosage: 200 UNITS, SINGLE
     Route: 030
     Dates: start: 20080915, end: 20080915
  2. BOTOX [Suspect]
     Dosage: UNK, SINGLE
     Dates: start: 20080317, end: 20080317
  3. BOTOX [Suspect]
     Dosage: UNK, SINGLE
     Dates: start: 20071211, end: 20071211
  4. BOTOX [Suspect]
     Dosage: UNK, SINGLE
     Dates: start: 20070915, end: 20070915
  5. BOTOX [Suspect]
     Dosage: UNK, SINGLE
     Dates: start: 20070727, end: 20070727
  6. BOTOX [Suspect]
     Dosage: UNK, SINGLE
     Dates: start: 20070418, end: 20070418
  7. BACLOFEN [Concomitant]
     Indication: DYSTONIA
  8. ARTANE [Concomitant]
     Indication: DYSTONIA
  9. TYLENOL (CAPLET) [Concomitant]
  10. ASPIRIN [Concomitant]
     Indication: DRUG USE FOR UNKNOWN INDICATION
  11. IMODIUM [Concomitant]
  12. TOPROL-XL [Concomitant]
     Indication: DRUG USE FOR UNKNOWN INDICATION
  13. VITAMIN B-12 [Concomitant]
  14. BEANO [Concomitant]
     Indication: DRUG USE FOR UNKNOWN INDICATION

REACTIONS (2)
  - ACQUIRED OESOPHAGEAL WEB [None]
  - DYSPHAGIA [None]
